FAERS Safety Report 8074636-3 (Version None)
Quarter: 2012Q1

REPORT INFORMATION
  Report Type: 
  Country: None (occurrence: None)
  Receive Date: 20120126
  Receipt Date: 20120123
  Transmission Date: 20120608
  Serious: Yes (Hospitalization, Other)
  Sender: FDA-Public Use
  Company Number: VE-PFIZER INC-2011091821

PATIENT
  Age: 32 Week
  Sex: Male
  Weight: 1.455 kg

DRUGS (1)
  1. LIPITOR [Suspect]
     Indication: HYPERCHOLESTEROLAEMIA
     Dosage: 40 MG, 1X/DAY
     Route: 064
     Dates: start: 20080101, end: 20110416

REACTIONS (3)
  - DYSPNOEA [None]
  - INFECTION [None]
  - FOETAL EXPOSURE DURING PREGNANCY [None]
